FAERS Safety Report 7867298-9 (Version None)
Quarter: 2011Q4

REPORT INFORMATION
  Report Type: 
  Country: None (occurrence: None)
  Receive Date: 20111028
  Receipt Date: 20111019
  Transmission Date: 20120403
  Serious: Yes (Hospitalization, Other)
  Sender: FDA-Public Use
  Company Number: AU-SANOFI-AVENTIS-2011SA068707

PATIENT
  Age: 38 Year
  Sex: Male

DRUGS (11)
  1. LANTUS [Suspect]
     Route: 058
  2. PANTOPRAZOLE [Concomitant]
  3. LANTUS [Suspect]
     Route: 058
     Dates: start: 20080801
  4. IBUPROFEN [Concomitant]
     Indication: CHEST PAIN
  5. LANTUS [Suspect]
     Route: 065
  6. NOVORAPID [Concomitant]
  7. ATACAND [Concomitant]
  8. VENTOLIN [Concomitant]
  9. VENLAFAXINE [Concomitant]
  10. ACETAMINOPHEN [Concomitant]
  11. VITAMIN D [Concomitant]

REACTIONS (6)
  - PERICARDITIS [None]
  - LOWER RESPIRATORY TRACT INFECTION [None]
  - HEADACHE [None]
  - CONFUSIONAL STATE [None]
  - EMPHYSEMA [None]
  - HYPOGLYCAEMIA [None]
